FAERS Safety Report 4881792-4 (Version None)
Quarter: 2006Q1

REPORT INFORMATION
  Report Type: 
  Country: None (occurrence: None)
  Receive Date: 20060112
  Receipt Date: 20060112
  Transmission Date: 20060701
  Serious: Yes (Hospitalization)
  Sender: FDA-Public Use
  Company Number: None

PATIENT
  Age: 67 Year
  Sex: Male
  Weight: 80.5 kg

DRUGS (2)
  1. PRIMAXIN [Suspect]
     Indication: ACINETOBACTER INFECTION
     Dosage: 500MG Q6H IV
     Route: 042
     Dates: start: 20051120, end: 20051205
  2. PRIMAXIN [Suspect]
     Indication: OSTEOMYELITIS
     Dosage: 500MG Q6H IV
     Route: 042
     Dates: start: 20051120, end: 20051205

REACTIONS (1)
  - CONVULSION [None]
